FAERS Safety Report 5333723-0 (Version None)
Quarter: 2007Q2

REPORT INFORMATION
  Report Type: 
  Country: None (occurrence: None)
  Receive Date: 20070524
  Receipt Date: 20070509
  Transmission Date: 20071010
  Serious: Yes (Hospitalization)
  Sender: FDA-Public Use
  Company Number: D0052509A

PATIENT
  Age: 2 Year
  Sex: Female
  Weight: 12 kg

DRUGS (1)
  1. REQUIP [Suspect]
     Dosage: 1TAB SINGLE DOSE
     Route: 048
     Dates: start: 20070303, end: 20070303

REACTIONS (2)
  - ACCIDENTAL DRUG INTAKE BY CHILD [None]
  - NO ADVERSE DRUG EFFECT [None]
